FAERS Safety Report 8444710-8 (Version None)
Quarter: 2012Q2

REPORT INFORMATION
  Report Type: 
  Country: None (occurrence: None)
  Receive Date: 20120618
  Receipt Date: 20120615
  Transmission Date: 20120825
  Serious: No
  Sender: FDA-Public Use
  Company Number: US-BAYER-2012-059788

PATIENT
  Age: 65 Year
  Sex: Male

DRUGS (3)
  1. DIURETICS [Concomitant]
  2. LEVITRA [Suspect]
     Indication: ERECTILE DYSFUNCTION
     Dosage: UNK
     Route: 048
     Dates: end: 20120614
  3. ANTIHYPERTENSIVES [Concomitant]

REACTIONS (1)
  - ERECTILE DYSFUNCTION [None]
